FAERS Safety Report 25125728 (Version 1)
Quarter: 2025Q1

REPORT INFORMATION
  Report Type: Spontaneous
  Country: US (occurrence: US)
  Receive Date: 20250326
  Receipt Date: 20250326
  Transmission Date: 20250408
  Serious: No
  Sender: FRESENIUS KABI
  Company Number: US-FreseniusKabi-FK202504200

PATIENT
  Sex: Female

DRUGS (1)
  1. TYENNE [Suspect]
     Active Substance: TOCILIZUMAB-AAZG
     Indication: Product used for unknown indication

REACTIONS (5)
  - Urticaria [Unknown]
  - Swelling face [Unknown]
  - Hypoaesthesia oral [Unknown]
  - Pruritus [Unknown]
  - Chest discomfort [Unknown]
